FAERS Safety Report 25265582 (Version 1)
Quarter: 2025Q2

REPORT INFORMATION
  Report Type: Spontaneous
  Country: BG (occurrence: BG)
  Receive Date: 20250502
  Receipt Date: 20250502
  Transmission Date: 20250716
  Serious: Yes (Other)
  Sender: PRINSTON PHARMACEUTICAL
  Company Number: BG-PRINSTON PHARMACEUTICAL INC.-2025PRN00154

PATIENT
  Age: 71 Year
  Sex: Male

DRUGS (6)
  1. OLMESARTAN MEDOXOMIL AND HYDROCHLOROTHIAZIDE [Suspect]
     Active Substance: HYDROCHLOROTHIAZIDE\OLMESARTAN MEDOXOMIL
     Indication: Hypertension
     Dosage: 20 MG, 1X/DAY ( 20/12.5 MG)
     Route: 065
     Dates: start: 202207, end: 202302
  2. VALSARTAN [Suspect]
     Active Substance: VALSARTAN
     Indication: Hypertension
     Dosage: 160 MG, 1X/DAY
     Route: 065
     Dates: start: 2015, end: 2018
  3. VALSARTAN AND HYDROCHLOROTHIAZIDE [Suspect]
     Active Substance: HYDROCHLOROTHIAZIDE\VALSARTAN
     Indication: Hypertension
     Dosage: 160 MG, 1X/DAY, MORNING (160/12.5 MG)
     Route: 065
     Dates: start: 2018, end: 202208
  4. AMLODIPINE BESYLATE\OLMESARTAN MEDOXOMIL [Suspect]
     Active Substance: AMLODIPINE BESYLATE\OLMESARTAN MEDOXOMIL
     Indication: Hypertension
     Dosage: 20 MG, 1X/HOUR, EVENING
     Route: 065
     Dates: start: 202202
  5. AMLODIPINE BESYLATE\OLMESARTAN MEDOXOMIL [Suspect]
     Active Substance: AMLODIPINE BESYLATE\OLMESARTAN MEDOXOMIL
     Dosage: 20 MG, 1X/HOUR, EVENING
     Route: 065
     Dates: start: 202207
  6. MOXONIDINE [Concomitant]
     Active Substance: MOXONIDINE
     Indication: Hypertension
     Dates: start: 2015

REACTIONS (1)
  - Basal cell carcinoma [Unknown]
